FAERS Safety Report 4654821-0 (Version None)
Quarter: 2005Q2

REPORT INFORMATION
  Report Type: 
  Country: None (occurrence: None)
  Receive Date: 20050505
  Receipt Date: 20050505
  Transmission Date: 20051028
  Serious: Yes (Life-Threatening, Hospitalization, Disabling)
  Sender: FDA-Public Use
  Company Number: None

PATIENT
  Sex: Male
  Weight: 117.9352 kg

DRUGS (7)
  1. ZITHROMAX [Suspect]
     Indication: BRONCHITIS
     Dosage: 2 TABS    DAY 1    ORAL
     Route: 048
     Dates: start: 20040909, end: 20040909
  2. ZITHROMAX [Suspect]
     Indication: OTITIS MEDIA
     Dosage: 2 TABS    DAY 1    ORAL
     Route: 048
     Dates: start: 20040909, end: 20040909
  3. LISINOPRIL [Concomitant]
  4. LOVASTATIN [Concomitant]
  5. ALBUTEROL [Concomitant]
  6. HYDROCHLOROTHIAZIDE [Concomitant]
  7. ALBUTEROL [Concomitant]

REACTIONS (1)
  - BRAIN OEDEMA [None]
